FAERS Safety Report 8623453-1 (Version None)
Quarter: 2012Q3

REPORT INFORMATION
  Report Type: 
  Country: None (occurrence: None)
  Receive Date: 20120824
  Receipt Date: 20120824
  Transmission Date: 20120928
  Serious: Yes (Other)
  Sender: FDA-Public Use
  Company Number: None

PATIENT
  Age: 53 Year
  Sex: Female
  Weight: 71.2147 kg

DRUGS (1)
  1. DOXYCYCLINE [Suspect]
     Indication: LYME DISEASE
     Dosage: 100 MG 2 TIMES PER DAY PO
     Route: 048
     Dates: start: 20120821, end: 20120821

REACTIONS (8)
  - ANXIETY [None]
  - NAUSEA [None]
  - CHEST PAIN [None]
  - HEADACHE [None]
  - DYSPNOEA [None]
  - RASH [None]
  - VOMITING [None]
  - DRUG HYPERSENSITIVITY [None]
